FAERS Safety Report 8119926-0 (Version None)
Quarter: 2012Q1

REPORT INFORMATION
  Report Type: 
  Country: None (occurrence: None)
  Receive Date: 20120206
  Receipt Date: 20120206
  Transmission Date: 20120608
  Serious: Yes (Life-Threatening, Hospitalization)
  Sender: FDA-Public Use
  Company Number: None

PATIENT
  Age: 64 Year
  Sex: Female
  Weight: 72.5755 kg

DRUGS (6)
  1. FEXOFENADINE [Concomitant]
  2. CLONAZEPAM [Concomitant]
  3. OMEPRAZOLE [Concomitant]
  4. TRANSDERM SCOP [Suspect]
     Indication: PROPHYLAXIS AGAINST MOTION SICKNESS
     Dosage: 1 PATCH EVERY 3 DAYS
     Dates: start: 20111120, end: 20111127
  5. DILTIAZEM HCL [Concomitant]
  6. LISINOPRIL [Concomitant]

REACTIONS (4)
  - LOSS OF CONSCIOUSNESS [None]
  - IMPAIRED WORK ABILITY [None]
  - POST-TRAUMATIC STRESS DISORDER [None]
  - CARDIO-RESPIRATORY ARREST [None]
